FAERS Safety Report 6329895-1 (Version None)
Quarter: 2009Q3

REPORT INFORMATION
  Report Type: 
  Country: None (occurrence: None)
  Receive Date: 20090825
  Receipt Date: 20090813
  Transmission Date: 20100115
  Serious: Yes (Disabling)
  Sender: FDA-Public Use
  Company Number: ADR15302009

PATIENT
  Age: 50 Year
  Sex: Female

DRUGS (8)
  1. SIMVASTATIN [Suspect]
     Indication: HYPERLIPIDAEMIA
     Dosage: 40MG (1/1DAY) ORAL
     Route: 048
     Dates: start: 20080114, end: 20090106
  2. SIMVASTATIN [Suspect]
     Indication: TYPE 2 DIABETES MELLITUS
     Dosage: 40MG (1/1DAY) ORAL
     Route: 048
     Dates: start: 20080114, end: 20090106
  3. ATORVASTATIN [Concomitant]
  4. AMLODIPINE [Concomitant]
  5. EXENATIDE [Concomitant]
  6. GLICLAZIDE [Concomitant]
  7. METHYLDOPA [Concomitant]
  8. PIOGLITAZONE [Concomitant]

REACTIONS (2)
  - ALOPECIA [None]
  - ANDROGENETIC ALOPECIA [None]
